FAERS Safety Report 15977981 (Version 8)
Quarter: 2020Q2

REPORT INFORMATION
  Report Type: Spontaneous
  Country: US (occurrence: US)
  Receive Date: 20190218
  Receipt Date: 20200625
  Transmission Date: 20200713
  Serious: Yes (Hospitalization)
  Sender: FDA-Public Use
  Company Number: US-SA-2018SA295164

PATIENT

DRUGS (4)
  1. DUPIXENT [Suspect]
     Active Substance: DUPILUMAB
     Dosage: 600 MG, 1X
     Route: 058
     Dates: start: 202001, end: 202001
  2. DUPIXENT [Suspect]
     Active Substance: DUPILUMAB
     Indication: DERMATITIS ATOPIC
     Dosage: 300 MG, QOW
     Route: 058
     Dates: start: 201810
  3. DUPIXENT [Suspect]
     Active Substance: DUPILUMAB
     Dosage: 300 MG, QOW
     Route: 058
     Dates: start: 2020
  4. DUPIXENT [Suspect]
     Active Substance: DUPILUMAB
     Indication: PRODUCT USED FOR UNKNOWN INDICATION
     Dosage: 300 MG, QOW
     Route: 058

REACTIONS (12)
  - Product dose omission [Unknown]
  - Knee arthroplasty [Unknown]
  - Nasopharyngitis [Unknown]
  - Vitreous floaters [Unknown]
  - Myalgia [Unknown]
  - Condition aggravated [Unknown]
  - Muscle spasms [Unknown]
  - Pain in extremity [Unknown]
  - Muscle tightness [Unknown]
  - Arthralgia [Unknown]
  - Rash [Unknown]
  - Dry eye [Unknown]

NARRATIVE: CASE EVENT DATE: 2018
